FAERS Safety Report 6259629-0 (Version None)
Quarter: 2009Q3

REPORT INFORMATION
  Report Type: 
  Country: None (occurrence: None)
  Receive Date: 20090708
  Receipt Date: 20090702
  Transmission Date: 20100115
  Serious: Yes (Other)
  Sender: FDA-Public Use
  Company Number: US-JNJFOC-20080903866

PATIENT
  Sex: Male
  Weight: 102.97 kg

DRUGS (9)
  1. TOPAMAX [Suspect]
     Indication: MIGRAINE PROPHYLAXIS
     Route: 048
  2. XANAX [Concomitant]
     Indication: PANIC ATTACK
  3. ASPIRIN [Concomitant]
     Indication: ANTICOAGULANT THERAPY
  4. ALUPURINOL [Concomitant]
     Indication: GOUT
     Route: 048
  5. NORVASC [Concomitant]
     Indication: HYPERTENSION
     Route: 048
  6. LISINOPRIL [Concomitant]
     Indication: HYPERTENSION
     Route: 048
  7. ZOCOR [Concomitant]
     Indication: BLOOD CHOLESTEROL
  8. RESTORIL [Concomitant]
     Indication: SLEEP DISORDER
     Route: 048
  9. VICODIN [Concomitant]
     Indication: PAIN

REACTIONS (17)
  - ABNORMAL BEHAVIOUR [None]
  - ADVERSE DRUG REACTION [None]
  - ANGER [None]
  - ASTHENIA [None]
  - CONFUSIONAL STATE [None]
  - CRYING [None]
  - DELUSION [None]
  - DIZZINESS [None]
  - DYSPNOEA [None]
  - HEART RATE INCREASED [None]
  - HYPERVENTILATION [None]
  - MIGRAINE [None]
  - MOOD ALTERED [None]
  - MUSCULOSKELETAL STIFFNESS [None]
  - NERVOUSNESS [None]
  - PARAESTHESIA [None]
  - SUICIDAL IDEATION [None]
